FAERS Safety Report 6544787-0 (Version None)
Quarter: 2010Q1

REPORT INFORMATION
  Report Type: 
  Country: None (occurrence: None)
  Receive Date: 20100120
  Receipt Date: 20100120
  Transmission Date: 20100710
  Serious: No
  Sender: FDA-Public Use
  Company Number: None

PATIENT
  Age: 51 Year
  Sex: Female
  Weight: 74.8435 kg

DRUGS (1)
  1. AVELOX [Suspect]
     Indication: SINUSITIS
     Dosage: ONE 400MG PILL DAILY FOR 7 DAYS PO
     Route: 048
     Dates: start: 20100112, end: 20100114

REACTIONS (7)
  - ANXIETY [None]
  - ARTHRALGIA [None]
  - ARTHRITIS [None]
  - CARPAL TUNNEL SYNDROME [None]
  - INFLAMMATION [None]
  - NERVOUSNESS [None]
  - PAIN IN EXTREMITY [None]
